FAERS Safety Report 4661444-6 (Version None)
Quarter: 2005Q2

REPORT INFORMATION
  Report Type: 
  Country: None (occurrence: None)
  Receive Date: 20050513
  Receipt Date: 20041203
  Transmission Date: 20051028
  Serious: Yes (Other)
  Sender: FDA-Public Use
  Company Number: GB-GLAXOSMITHKLINE-B0359524A

PATIENT
  Sex: Female

DRUGS (6)
  1. PAROXETINE HCL [Suspect]
     Route: 065
  2. LACTULOSE [Concomitant]
  3. BENDROFLUMETHIAZIDE [Concomitant]
  4. PROCHLORPERAZINE MALEATE [Concomitant]
  5. TRAMADOL HCL [Concomitant]
  6. CHLORPHENAMINE [Concomitant]

REACTIONS (4)
  - AGGRESSION [None]
  - COMPLETED SUICIDE [None]
  - ILL-DEFINED DISORDER [None]
  - INTENTIONAL MISUSE [None]
